FAERS Safety Report 12372797 (Version 4)
Quarter: 2016Q3

REPORT INFORMATION
  Report Type: Spontaneous
  Country: US (occurrence: US)
  Receive Date: 20160516
  Receipt Date: 20160728
  Transmission Date: 20161109
  Serious: Yes (Hospitalization)
  Sender: FDA-Public Use
  Company Number: US-UNITED THERAPEUTICS-UNT-2016-003321

PATIENT
  Age: 70 Year
  Sex: Male
  Weight: 65.76 kg

DRUGS (5)
  1. OPSUMIT [Suspect]
     Active Substance: MACITENTAN
     Indication: PRODUCT USED FOR UNKNOWN INDICATION
     Dosage: UNK
     Dates: start: 20160127
  2. REMODULIN [Suspect]
     Active Substance: TREPROSTINIL
     Dosage: 0.049 ?G/KG, CONTINUING
     Route: 041
  3. DIGOXIN. [Concomitant]
     Active Substance: DIGOXIN
     Indication: PRODUCT USED FOR UNKNOWN INDICATION
     Dosage: 0.25 MG, QD
  4. REMODULIN [Suspect]
     Active Substance: TREPROSTINIL
     Indication: PULMONARY ARTERIAL HYPERTENSION
     Dosage: 0.043 ?G/KG, CONTINUING
     Route: 041
     Dates: start: 20140220
  5. REMODULIN [Suspect]
     Active Substance: TREPROSTINIL
     Dosage: UNK

REACTIONS (16)
  - Pain in extremity [Unknown]
  - Wrong technique in product usage process [Unknown]
  - Nausea [Not Recovered/Not Resolved]
  - Malaise [Unknown]
  - Vomiting [Not Recovered/Not Resolved]
  - Syncope [Unknown]
  - Epistaxis [Recovered/Resolved]
  - Loss of consciousness [Unknown]
  - Chills [Unknown]
  - Fungal infection [Unknown]
  - Diarrhoea [Not Recovered/Not Resolved]
  - Headache [Unknown]
  - Oxygen saturation decreased [Unknown]
  - Oxygen consumption increased [Unknown]
  - Pain in jaw [Unknown]
  - Anaemia [Unknown]

NARRATIVE: CASE EVENT DATE: 201511
